FAERS Safety Report 4367426-6 (Version None)
Quarter: 2004Q2

REPORT INFORMATION
  Report Type: 
  Country: None (occurrence: None)
  Receive Date: 20040528
  Receipt Date: 20040528
  Transmission Date: 20050107
  Serious: Yes (Life-Threatening)
  Sender: FDA-Public Use
  Company Number: None

PATIENT
  Age: 70 Year
  Sex: Female
  Weight: 66 kg

DRUGS (3)
  1. CISPLATIN [Suspect]
     Indication: GALLBLADDER CANCER
     Dosage: Q 3 WEEKS IV
     Route: 042
     Dates: start: 20040520
  2. BENADRYL [Concomitant]
  3. DECADRON [Concomitant]

REACTIONS (3)
  - ERYTHEMA [None]
  - NASOPHARYNGITIS [None]
  - PRURITUS [None]
